FAERS Safety Report 8109980-4 (Version None)
Quarter: 2012Q1

REPORT INFORMATION
  Report Type: 
  Country: None (occurrence: None)
  Receive Date: 20120202
  Receipt Date: 20120123
  Transmission Date: 20120608
  Serious: No
  Sender: FDA-Public Use
  Company Number: US-AMGEN-USASP2012004710

PATIENT
  Age: 45 Year
  Sex: Male

DRUGS (1)
  1. ENBREL [Suspect]
     Indication: RHEUMATOID ARTHRITIS
     Dosage: 50 MG, QWK
     Dates: start: 20120117

REACTIONS (6)
  - FEELING ABNORMAL [None]
  - PRURITUS [None]
  - ABDOMINAL PAIN [None]
  - PAIN [None]
  - RASH MACULO-PAPULAR [None]
  - INCREASED APPETITE [None]
